FAERS Safety Report 10149139 (Version 1)
Quarter: 2014Q2

REPORT INFORMATION
  Report Type: Spontaneous
  Country: US (occurrence: None)
  Receive Date: 20140501
  Receipt Date: 20140501
  Transmission Date: 20141212
  Serious: Yes (Hospitalization)
  Sender: FDA-Public Use
  Company Number: None

PATIENT
  Age: 67 Year
  Sex: Male

DRUGS (6)
  1. WARFARIN [Suspect]
     Indication: ANTICOAGULANT THERAPY
     Dosage: VARIABLE CONTINUOUS
     Route: 048
     Dates: start: 20130604, end: 20130610
  2. AMIODARONE [Concomitant]
  3. HEPARIN [Concomitant]
  4. ASPIRIN [Concomitant]
  5. CLOPIDOGREL [Concomitant]
  6. QUETIAPINE [Concomitant]

REACTIONS (2)
  - Haemoglobin decreased [None]
  - Retroperitoneal haematoma [None]
